FAERS Safety Report 18509158 (Version 2)
Quarter: 2020Q4

REPORT INFORMATION
  Report Type: Spontaneous
  Country: US (occurrence: US)
  Receive Date: 20201117
  Receipt Date: 20201126
  Transmission Date: 20210114
  Serious: Yes (Other)
  Sender: FDA-Public Use
  Company Number: US-HORIZON-2020HZN01146

PATIENT
  Age: 26 Year
  Sex: Male

DRUGS (3)
  1. KRYSTEXXA [Suspect]
     Active Substance: PEGLOTICASE
     Indication: GOUT
     Dosage: IV INFUSION EVERY TWO WEEKS
     Route: 050
     Dates: start: 20201021
  2. COLCHICINE. [Concomitant]
     Active Substance: COLCHICINE
  3. ULORIC [Concomitant]
     Active Substance: FEBUXOSTAT

REACTIONS (2)
  - Hypersensitivity [Recovered/Resolved]
  - Inappropriate schedule of product administration [Recovered/Resolved]

NARRATIVE: CASE EVENT DATE: 20201105
